FAERS Safety Report 9372472 (Version 1)
Quarter: 2013Q2

REPORT INFORMATION
  Report Type: Report from Study
  Country: US (occurrence: US)
  Receive Date: 20130627
  Receipt Date: 20130627
  Transmission Date: 20140414
  Serious: Yes (Other)
  Sender: FDA-Public Use
  Company Number: US-MYLANLABS-2012S1025336

PATIENT
  Age: 55 Year
  Sex: Female

DRUGS (5)
  1. CLOZAPINE TABLETS [Suspect]
     Indication: SCHIZOPHRENIA, PARANOID TYPE
     Route: 048
     Dates: start: 20121203, end: 20121205
  2. RISPERIDONE [Concomitant]
     Indication: AGITATION
     Dosage: PRN
     Route: 048
  3. SYNTHROID [Concomitant]
     Indication: HYPOTHYROIDISM
     Route: 048
  4. ATENOLOL [Concomitant]
     Indication: HYPERTENSION
     Route: 048
  5. NEXIUM [Concomitant]
     Indication: GASTROOESOPHAGEAL REFLUX DISEASE
     Route: 048

REACTIONS (2)
  - Granulocytopenia [Not Recovered/Not Resolved]
  - Leukopenia [Recovering/Resolving]
